FAERS Safety Report 4555370-0 (Version None)
Quarter: 2005Q1

REPORT INFORMATION
  Report Type: 
  Country: None (occurrence: None)
  Receive Date: 20050118
  Receipt Date: 20050118
  Transmission Date: 20050727
  Serious: Yes (Life-Threatening, Hospitalization)
  Sender: FDA-Public Use
  Company Number: None

PATIENT
  Age: 56 Year
  Sex: Female
  Weight: 55.3388 kg

DRUGS (7)
  1. SEROQUEL [Suspect]
     Indication: DELIRIUM
     Dosage: 25 MG AM 50MG PM
     Dates: start: 20040930, end: 20041002
  2. SEROQUEL [Suspect]
     Indication: PSYCHOTIC DISORDER
     Dosage: 25 MG AM 50MG PM
     Dates: start: 20040930, end: 20041002
  3. GEODON [Suspect]
     Indication: AGITATION
     Dosage: 10MG 100MG HS  IM
     Route: 030
     Dates: start: 20041001
  4. PAROXETINE HCL [Concomitant]
  5. VERAPAMIL [Concomitant]
  6. CRESTOR [Concomitant]
  7. PREDNISONE [Concomitant]

REACTIONS (4)
  - HYPERHIDROSIS [None]
  - MUSCLE RIGIDITY [None]
  - NEUROLEPTIC MALIGNANT SYNDROME [None]
  - TACHYPNOEA [None]
